FAERS Safety Report 8176449 (Version 2)
Quarter: 2012Q4

REPORT INFORMATION
  Report Type: 
  Country: US (occurrence: US)
  Receive Date: 20111011
  Receipt Date: 20121030
  Transmission Date: 20130627
  Serious: Yes (Hospitalization, Other)
  Sender: FDA-Public Use
  Company Number: US-ROCHE-1001564

PATIENT
  Age: 24 None
  Sex: Female
  Weight: 81.72 kg

DRUGS (1)
  1. ACCUTANE [Suspect]
     Indication: PRODUCT USED FOR UNKNOWN INDICATION
     Route: 065
     Dates: start: 2002, end: 2003

REACTIONS (10)
  - Crohn^s disease [Unknown]
  - Clostridium difficile colitis [Unknown]
  - Colitis ulcerative [Unknown]
  - Anal fissure [Unknown]
  - Post-traumatic stress disorder [Unknown]
  - Depression [Unknown]
  - Suicidal ideation [Unknown]
  - Suicide attempt [Unknown]
  - Inflammatory bowel disease [Unknown]
  - Intestinal obstruction [Unknown]
